FAERS Safety Report 8477506-1 (Version None)
Quarter: 2012Q2

REPORT INFORMATION
  Report Type: 
  Country: None (occurrence: None)
  Receive Date: 20120629
  Receipt Date: 20120625
  Transmission Date: 20120825
  Serious: Yes (Disabling, Other)
  Sender: FDA-Public Use
  Company Number: PHEH2012US010063

PATIENT
  Sex: Female

DRUGS (18)
  1. RECLAST [Suspect]
     Indication: OSTEOPOROSIS
     Dosage: 5 MG/100 ML, ONCE A YEAR
     Route: 042
     Dates: start: 20120326
  2. LIPITOR [Concomitant]
     Indication: BLOOD CHOLESTEROL
     Dosage: 20 MG, QD
     Route: 048
  3. PLAVIX [Concomitant]
     Indication: ANTICOAGULANT THERAPY
     Dosage: 75 MG, QD
     Route: 048
  4. TRAMADOL HCL [Concomitant]
     Indication: PAIN
     Dosage: 50 MG, Q18H
     Route: 048
  5. VITAMIN D [Concomitant]
     Dosage: 1 TABLET, QD
     Route: 048
  6. LOVAZA [Concomitant]
     Dosage: 1000 MG, QD
     Route: 048
  7. PRISTIQ [Concomitant]
     Indication: DEPRESSION
     Dosage: 100 MG, QD
     Route: 048
  8. METAMUCIL-2 [Concomitant]
     Dosage: 1 CAPSULE, QD
     Route: 048
  9. GLIPIZIDE [Concomitant]
     Indication: DIABETES MELLITUS
     Dosage: 10 MG, BID
     Route: 048
  10. VALIUM [Concomitant]
     Indication: SLEEP DISORDER
  11. LANTUS [Concomitant]
     Indication: BLOOD INSULIN
     Dosage: 13 U, QD
  12. LISINOPRIL [Concomitant]
     Indication: HYPERTENSION
     Dosage: 5 MG, QD
     Route: 048
  13. VALIUM [Concomitant]
     Indication: ANXIETY
     Dosage: 5 MG, QD
     Route: 048
  14. COREG [Concomitant]
     Indication: BLOOD PRESSURE
     Dosage: 3.125 MG, BID
     Route: 048
  15. NAMENDA [Concomitant]
     Indication: AMNESIA
     Dosage: 10 MG, BID
     Route: 048
  16. ZYRTEC [Concomitant]
     Indication: HYPERSENSITIVITY
     Dosage: UNK UKN, QD
     Route: 048
  17. BETHANECHOL CHLORIDE [Concomitant]
     Indication: BLADDER DISORDER
     Dosage: 25 MG, BID
     Route: 048
  18. VITAMIN B COMPLEX CAP [Concomitant]
     Dosage: 1 TABLET, QD
     Route: 048

REACTIONS (16)
  - GAIT DISTURBANCE [None]
  - DEPRESSION [None]
  - BONE PAIN [None]
  - MONOPLEGIA [None]
  - MUSCLE ATROPHY [None]
  - DYSSTASIA [None]
  - WEIGHT INCREASED [None]
  - ARTHRALGIA [None]
  - PAIN [None]
  - FEELING ABNORMAL [None]
  - DIARRHOEA [None]
  - ABASIA [None]
  - FATIGUE [None]
  - PAIN IN EXTREMITY [None]
  - INFLUENZA LIKE ILLNESS [None]
  - NAUSEA [None]
